FAERS Safety Report 9984171 (Version 1)
Quarter: 2014Q1

REPORT INFORMATION
  Report Type: Spontaneous
  Country: US (occurrence: US)
  Receive Date: 20140307
  Receipt Date: 20140307
  Transmission Date: 20141002
  Serious: No
  Sender: FDA-Public Use
  Company Number: US-ABBVIE-13P-163-1182356-00

PATIENT
  Sex: Female

DRUGS (4)
  1. HUMIRA [Suspect]
     Indication: CROHN^S DISEASE
     Route: 058
     Dates: start: 2012
  2. 6-MP [Concomitant]
     Indication: CROHN^S DISEASE
     Route: 048
  3. PREDNISONE [Concomitant]
     Indication: CROHN^S DISEASE
     Route: 048
  4. NUVARING [Concomitant]
     Indication: CONTRACEPTION

REACTIONS (2)
  - Lip swelling [Recovered/Resolved]
  - Arthralgia [Unknown]
